FAERS Safety Report 9992008 (Version 1)
Quarter: 2014Q1

REPORT INFORMATION
  Report Type: Spontaneous
  Country: US (occurrence: US)
  Receive Date: 20140310
  Receipt Date: 20140310
  Transmission Date: 20141002
  Serious: No
  Sender: FDA-Public Use
  Company Number: US-ASTELLAS-2014US001472

PATIENT
  Sex: Male

DRUGS (2)
  1. XTANDI [Suspect]
     Indication: GENITAL CANCER MALE
     Dosage: 160 MG, UID/QD
     Route: 048
     Dates: start: 201312
  2. XTANDI [Suspect]
     Indication: COLON CANCER

REACTIONS (4)
  - Off label use [Unknown]
  - Depression [Unknown]
  - Insomnia [Unknown]
  - Anxiety [Unknown]
